FAERS Safety Report 19051492 (Version 1)
Quarter: 2021Q1

REPORT INFORMATION
  Report Type: Spontaneous
  Country: GB (occurrence: GB)
  Receive Date: 20210324
  Receipt Date: 20210324
  Transmission Date: 20210420
  Serious: Yes (Other)
  Sender: FDA-Public Use
  Company Number: GB-SA-2021SA092500

PATIENT
  Sex: Female

DRUGS (12)
  1. CIPROFLOXACIN HYDROCHLORIDE. [Interacting]
     Active Substance: CIPROFLOXACIN HYDROCHLORIDE
     Indication: ENDOCARDITIS BACTERIAL
     Dosage: UNK
  2. DAPTOMYCIN. [Interacting]
     Active Substance: DAPTOMYCIN
     Indication: ENDOCARDITIS BACTERIAL
     Dosage: UNK
  3. CIPROFLOXACIN HYDROCHLORIDE. [Interacting]
     Active Substance: CIPROFLOXACIN HYDROCHLORIDE
     Indication: APLASTIC ANAEMIA
  4. FLUCONAZOLE. [Interacting]
     Active Substance: FLUCONAZOLE
     Indication: ENDOCARDITIS BACTERIAL
     Dosage: UNK
  5. RIFAMPICIN [Interacting]
     Active Substance: RIFAMPIN
     Indication: ENDOCARDITIS BACTERIAL
  6. CUBICIN [Interacting]
     Active Substance: DAPTOMYCIN
     Indication: APLASTIC ANAEMIA
     Dosage: UNK
  7. CUBICIN [Interacting]
     Active Substance: DAPTOMYCIN
     Indication: ENDOCARDITIS BACTERIAL
  8. RIFAMPICIN [Suspect]
     Active Substance: RIFAMPIN
     Indication: ENDOCARDITIS BACTERIAL
     Dosage: UNK
  9. CYCLOSPORINE. [Interacting]
     Active Substance: CYCLOSPORINE
     Indication: ENDOCARDITIS BACTERIAL
  10. FLUCONAZOLE. [Interacting]
     Active Substance: FLUCONAZOLE
     Indication: APLASTIC ANAEMIA
  11. CYCLOSPORINE. [Interacting]
     Active Substance: CYCLOSPORINE
     Indication: APLASTIC ANAEMIA
  12. DAPTOMYCIN. [Interacting]
     Active Substance: DAPTOMYCIN
     Indication: APLASTIC ANAEMIA

REACTIONS (1)
  - Drug interaction [Unknown]
